FAERS Safety Report 8318214-7 (Version None)
Quarter: 2012Q2

REPORT INFORMATION
  Report Type: 
  Country: None (occurrence: None)
  Receive Date: 20120427
  Receipt Date: 20120423
  Transmission Date: 20120825
  Serious: Yes (Other)
  Sender: FDA-Public Use
  Company Number: CN-ROCHE-1062747

PATIENT
  Age: 30 Year
  Sex: Female

DRUGS (2)
  1. UNKNOWN DRUG [Concomitant]
     Indication: BREAST CANCER
  2. HERCEPTIN [Suspect]
     Indication: BREAST CANCER
     Dates: start: 20110901

REACTIONS (6)
  - SKIN ATROPHY [None]
  - NASOPHARYNGITIS [None]
  - MOUTH ULCERATION [None]
  - POSTOPERATIVE WOUND COMPLICATION [None]
  - IMMUNODEFICIENCY [None]
  - IMPAIRED HEALING [None]
